FAERS Safety Report 16298178 (Version 1)
Quarter: 2019Q2

REPORT INFORMATION
  Report Type: Spontaneous
  Country: IT (occurrence: IT)
  Receive Date: 20190510
  Receipt Date: 20190510
  Transmission Date: 20190711
  Serious: Yes (Other)
  Sender: FDA-Public Use
  Company Number: IT-ROCHE-2315565

PATIENT
  Age: 21 Year
  Sex: Male

DRUGS (2)
  1. XANAX [Suspect]
     Active Substance: ALPRAZOLAM
     Indication: DRUG ABUSE
     Route: 048
  2. RIVOTRIL [Suspect]
     Active Substance: CLONAZEPAM
     Indication: DRUG ABUSE
     Route: 065

REACTIONS (5)
  - Drug abuse [Unknown]
  - Tachycardia [Unknown]
  - Behaviour disorder [Unknown]
  - Hypotension [Unknown]
  - Sopor [Unknown]

NARRATIVE: CASE EVENT DATE: 20190104
